FAERS Safety Report 7274323-5 (Version None)
Quarter: 2011Q1

REPORT INFORMATION
  Report Type: 
  Country: None (occurrence: None)
  Receive Date: 20110131
  Receipt Date: 20110131
  Transmission Date: 20110831
  Serious: Yes (Other)
  Sender: FDA-Public Use
  Company Number: None

PATIENT
  Age: 57 Year
  Sex: Female
  Weight: 93.8946 kg

DRUGS (1)
  1. NALTREXONE HCL 50MG [Suspect]
     Indication: DECREASED APPETITE
     Dosage: 50 MG ONCE PER DAY PO
     Route: 048
     Dates: start: 20110125, end: 20110125

REACTIONS (3)
  - VOMITING [None]
  - NAUSEA [None]
  - DIZZINESS [None]
